FAERS Safety Report 25513027 (Version 1)
Quarter: 2025Q3

REPORT INFORMATION
  Report Type: Spontaneous
  Country: GB (occurrence: GB)
  Receive Date: 20250703
  Receipt Date: 20250703
  Transmission Date: 20251021
  Serious: Yes (Life-Threatening, Hospitalization, Disabling, Other)
  Sender: ELI LILLY AND COMPANY
  Company Number: None

PATIENT
  Age: 38 Year
  Sex: Female
  Weight: 100 kg

DRUGS (1)
  1. MOUNJARO [Suspect]
     Active Substance: TIRZEPATIDE
     Indication: Weight control
     Dosage: 2.5 MG, WEEKLY (1/W)
     Route: 065
     Dates: start: 20250416

REACTIONS (7)
  - Embolism arterial [Recovered/Resolved with Sequelae]
  - Acute myocardial infarction [Recovered/Resolved]
  - Mesenteric vascular occlusion [Recovered/Resolved with Sequelae]
  - Renal infarct [Recovered/Resolved]
  - Peripheral artery occlusion [Recovering/Resolving]
  - Dry gangrene [Not Recovered/Not Resolved]
  - Splenic infarction [Recovered/Resolved]

NARRATIVE: CASE EVENT DATE: 20250518
